FAERS Safety Report 7478233-X (Version None)
Quarter: 2011Q2

REPORT INFORMATION
  Report Type: 
  Country: None (occurrence: None)
  Receive Date: 20110513
  Receipt Date: 20110506
  Transmission Date: 20111010
  Serious: Yes (Other)
  Sender: FDA-Public Use
  Company Number: PHHY2010US88517

PATIENT
  Age: 17 Year
  Sex: Male

DRUGS (1)
  1. FANAPT [Suspect]
     Indication: PSYCHOTIC DISORDER
     Dosage: 2 MG, BID
     Route: 048
     Dates: start: 20101101, end: 20110101

REACTIONS (1)
  - INSOMNIA [None]
